FAERS Safety Report 5040992-3 (Version None)
Quarter: 2006Q3

REPORT INFORMATION
  Report Type: 
  Country: None (occurrence: None)
  Receive Date: 20060703
  Receipt Date: 20050418
  Transmission Date: 20061208
  Serious: Yes (Other)
  Sender: FDA-Public Use
  Company Number: US-GLAXOSMITHKLINE-A0554500A

PATIENT
  Age: 61 Year
  Sex: Female

DRUGS (4)
  1. PARNATE [Suspect]
     Indication: DEPRESSION
     Dosage: 10MG EIGHT TIMES PER DAY
     Route: 048
  2. OMEPRAZOLE [Concomitant]
  3. LORAZEPAM [Concomitant]
  4. IRON [Concomitant]

REACTIONS (6)
  - ANAEMIA [None]
  - ANXIETY [None]
  - DRUG ADMINISTRATION ERROR [None]
  - DRUG INEFFECTIVE [None]
  - PANIC REACTION [None]
  - PHARMACEUTICAL PRODUCT COMPLAINT [None]
